FAERS Safety Report 10406716 (Version 3)
Quarter: 2015Q1

REPORT INFORMATION
  Report Type: Spontaneous
  Country: US (occurrence: US)
  Receive Date: 20140825
  Receipt Date: 20150304
  Transmission Date: 20150720
  Serious: Yes (Hospitalization)
  Sender: FDA-Public Use
  Company Number: US-BAYER-2014-126219

PATIENT
  Age: 26 Year
  Sex: Female
  Weight: 86.17 kg

DRUGS (1)
  1. MIRENA [Suspect]
     Active Substance: LEVONORGESTREL
     Indication: CONTRACEPTION
     Dosage: 20 MCG/24HR, CONT
     Route: 015
     Dates: start: 20081110, end: 20130111

REACTIONS (7)
  - Uterine perforation [None]
  - Injury [None]
  - Depression [None]
  - Anxiety [None]
  - Pain [None]
  - Emotional distress [None]
  - Syncope [None]

NARRATIVE: CASE EVENT DATE: 201209
